FAERS Safety Report 8701561 (Version 3)
Quarter: 2013Q4

REPORT INFORMATION
  Report Type: Spontaneous
  Country: US (occurrence: US)
  Receive Date: 20120803
  Receipt Date: 20131101
  Transmission Date: 20140711
  Serious: Yes (Hospitalization)
  Sender: FDA-Public Use
  Company Number: US-009507513-1208USA000570

PATIENT
  Age: 67 Year
  Sex: Female

DRUGS (4)
  1. JANUVIA [Suspect]
     Indication: TYPE 2 DIABETES MELLITUS
     Dosage: 50 MG, QD
     Route: 048
     Dates: end: 2012
  2. ALLOPURINOL [Concomitant]
  3. PRINIVIL [Suspect]
     Dosage: 5 MG, QD
     Route: 048
  4. PRINIVIL [Suspect]
     Dosage: 2.5 MG,
     Route: 048

REACTIONS (2)
  - Renal failure [Recovered/Resolved]
  - Wrong technique in drug usage process [Unknown]
